FAERS Safety Report 17817121 (Version 1)
Quarter: 2020Q2

REPORT INFORMATION
  Report Type: Spontaneous
  Country: CL (occurrence: CL)
  Receive Date: 20200522
  Receipt Date: 20200522
  Transmission Date: 20200714
  Serious: Yes (Other)
  Sender: FDA-Public Use
  Company Number: CL-ACTELION-A-CH2020-205356

PATIENT
  Age: 55 Year
  Sex: Male
  Weight: 65 kg

DRUGS (1)
  1. OPSUMIT [Suspect]
     Active Substance: MACITENTAN
     Indication: PULMONARY ARTERIAL HYPERTENSION
     Route: 048

REACTIONS (8)
  - Right ventricular dilatation [Unknown]
  - Angioplasty [Unknown]
  - Hyperbilirubinaemia [Unknown]
  - Stent placement [Unknown]
  - Sleep apnoea syndrome [Unknown]
  - Electrocardiogram ST segment elevation [Unknown]
  - Acute coronary syndrome [Unknown]
  - Transaminases increased [Unknown]

NARRATIVE: CASE EVENT DATE: 20120717
